FAERS Safety Report 5015724-5 (Version None)
Quarter: 2006Q2

REPORT INFORMATION
  Report Type: 
  Country: None (occurrence: None)
  Receive Date: 20060601
  Receipt Date: 20060410
  Transmission Date: 20061013
  Serious: Yes (Death, Life-Threatening, Hospitalization, Disabling, Other)
  Sender: FDA-Public Use
  Company Number: 2006PK00701

PATIENT
  Age: 954 Month
  Sex: Male
  Weight: 82 kg

DRUGS (17)
  1. IRESSA [Suspect]
     Indication: TRANSITIONAL CELL CARCINOMA
     Route: 048
     Dates: start: 20060206, end: 20060405
  2. GEMCITABINE [Suspect]
     Indication: TRANSITIONAL CELL CARCINOMA
     Dosage: CYCLE 6
     Route: 042
     Dates: start: 20050829
  3. CISPLATIN [Suspect]
     Indication: TRANSITIONAL CELL CARCINOMA
     Dosage: CYCLE 6
     Route: 042
     Dates: start: 20050829
  4. MST [Concomitant]
     Indication: PAIN
     Route: 058
     Dates: start: 20060401, end: 20060424
  5. CLACID [Concomitant]
     Indication: PYREXIA
     Route: 042
     Dates: start: 20060401, end: 20060401
  6. VOMEX [Concomitant]
     Indication: NAUSEA
     Dates: start: 20060401, end: 20060401
  7. MCP [Concomitant]
     Indication: NAUSEA
     Route: 048
     Dates: start: 20060401
  8. NAVOBAN [Concomitant]
     Indication: NAUSEA
     Route: 048
     Dates: start: 20060401, end: 20060424
  9. PANTOZOL [Concomitant]
     Indication: PROPHYLAXIS AGAINST GASTROINTESTINAL ULCER
     Route: 048
     Dates: end: 20060424
  10. SELEN [Concomitant]
     Indication: NEOPLASM MALIGNANT
     Route: 048
     Dates: start: 20060115
  11. CEFTRIAXON [Concomitant]
     Indication: PYREXIA
     Route: 042
     Dates: start: 20060401, end: 20060401
  12. MEATAMIZOL [Concomitant]
     Indication: PAIN
     Route: 048
     Dates: end: 20060424
  13. FOSAMAX [Concomitant]
     Indication: METASTASES TO BONE
     Route: 048
     Dates: end: 20060401
  14. JARSIN [Concomitant]
     Indication: DEPRESSION
     Route: 048
     Dates: start: 20060401, end: 20060401
  15. HYDRATION THERAPY [Concomitant]
     Indication: DEHYDRATION
     Route: 042
     Dates: start: 20060401, end: 20060424
  16. CIPROBAY [Concomitant]
     Indication: PYREXIA
     Route: 048
     Dates: start: 20060401, end: 20060401
  17. SEVREDOL [Concomitant]
     Indication: PAIN
     Route: 048
     Dates: start: 20060401, end: 20060401

REACTIONS (7)
  - ANAEMIA OF MALIGNANT DISEASE [None]
  - HEPATIC FAILURE [None]
  - LEUKOCYTOSIS [None]
  - MULTI-ORGAN FAILURE [None]
  - NAUSEA [None]
  - PYREXIA [None]
  - VOMITING [None]
